FAERS Safety Report 7950558-0 (Version None)
Quarter: 2011Q4

REPORT INFORMATION
  Report Type: 
  Country: None (occurrence: None)
  Receive Date: 20111130
  Receipt Date: 20111124
  Transmission Date: 20120403
  Serious: Yes (Hospitalization, Other)
  Sender: FDA-Public Use
  Company Number: PHHO2010JP02807

PATIENT
  Sex: Female
  Weight: 54 kg

DRUGS (18)
  1. LAXOBERON [Concomitant]
     Indication: CONSTIPATION
  2. HIRUDOID [Concomitant]
     Indication: DERMATOSIS
  3. COMPARATOR TRASTUZUMAB [Suspect]
     Indication: BREAST CANCER METASTATIC
     Dosage: 215 MG, UNK
     Dates: end: 20101207
  4. IMIDAPRIL HYDROCHLORIDE [Concomitant]
     Indication: HYPERTENSION
  5. LOXOPROFEN SODIUM [Concomitant]
     Indication: PAIN
  6. FLAVOXATE HYDROCHLORIDE [Concomitant]
     Indication: POLLAKIURIA
  7. CEFAZOLIN SODIUM [Concomitant]
  8. AZUNOL [Concomitant]
     Indication: DECUBITUS ULCER
  9. SULFAMETHOXAZOLE AND TRIMETHOPRIM [Suspect]
  10. AMITRIPTYLINE HCL [Concomitant]
  11. BLINDED NO TREATMENT RECEIVED [Suspect]
     Indication: BREAST CANCER METASTATIC
     Dosage: CODE NOT BROKEN
     Route: 048
     Dates: start: 20091222, end: 20100207
  12. PACLITAXEL [Suspect]
     Dosage: UNK
     Dates: start: 20100329, end: 20101102
  13. FUROSEMIDE [Suspect]
  14. PREDNISOLONE [Concomitant]
  15. VANCOMYCIN [Concomitant]
  16. AFINITOR [Suspect]
     Indication: BREAST CANCER METASTATIC
     Dosage: CODE NOT BROKEN
     Route: 048
     Dates: start: 20091222, end: 20100207
  17. BLINDED PLACEBO [Suspect]
     Indication: BREAST CANCER METASTATIC
     Dosage: CODE NOT BROKEN
     Route: 048
     Dates: start: 20091222, end: 20100207
  18. PACLITAXEL [Suspect]
     Indication: BREAST CANCER METASTATIC
     Dosage: 112 MG, UNK
     Dates: end: 20100315

REACTIONS (14)
  - PLEURAL EFFUSION [None]
  - HYPERGLYCAEMIA [None]
  - PNEUMOCYSTIS JIROVECI PNEUMONIA [None]
  - C-REACTIVE PROTEIN INCREASED [None]
  - LIVER DISORDER [None]
  - CATHETER SITE INFECTION [None]
  - ASCITES [None]
  - CEREBRAL ISCHAEMIA [None]
  - MEMORY IMPAIRMENT [None]
  - CEREBRAL ATROPHY [None]
  - BLOOD POTASSIUM DECREASED [None]
  - EPISTAXIS [None]
  - RENAL IMPAIRMENT [None]
  - ANAEMIA [None]
